FAERS Safety Report 9910278 (Version 2)
Quarter: 2014Q1

REPORT INFORMATION
  Report Type: Spontaneous
  Country: JP (occurrence: JP)
  Receive Date: 20140219
  Receipt Date: 20140306
  Transmission Date: 20141002
  Serious: Yes (Hospitalization)
  Sender: FDA-Public Use
  Company Number: JP-AMGEN-JPNSP2014011582

PATIENT
  Sex: Female

DRUGS (2)
  1. PRALIA [Suspect]
     Indication: OSTEOPOROSIS
     Dosage: 60 MG, UNK
     Route: 058
     Dates: start: 20140108
  2. DENOTAS [Concomitant]
     Route: 048
     Dates: start: 20140108, end: 20140210

REACTIONS (2)
  - Hospitalisation [Unknown]
  - Hypocalcaemia [Recovered/Resolved]
